FAERS Safety Report 4730311-1 (Version None)
Quarter: 2005Q3

REPORT INFORMATION
  Report Type: 
  Country: None (occurrence: None)
  Receive Date: 20050801
  Receipt Date: 20050722
  Transmission Date: 20060218
  Serious: Yes (Hospitalization)
  Sender: FDA-Public Use
  Company Number: FR-JNJFOC-20050705277

PATIENT
  Age: 45 Year
  Sex: Male

DRUGS (1)
  1. TAVANIC [Suspect]
     Indication: PROSTATITIS
     Route: 048

REACTIONS (2)
  - AMYOTROPHY [None]
  - WEIGHT DECREASED [None]
